FAERS Safety Report 10676333 (Version 1)
Quarter: 2014Q4

REPORT INFORMATION
  Report Type: Spontaneous
  Country: DE (occurrence: DE)
  Receive Date: 20141226
  Receipt Date: 20141226
  Transmission Date: 20150529
  Serious: Yes (Hospitalization, Other)
  Sender: FDA-Public Use
  Company Number: DE-ASTRAZENECA-2014SE98225

PATIENT
  Age: 72 Year
  Sex: Female

DRUGS (8)
  1. ERGENYL CHRONO [Suspect]
     Active Substance: VALPROIC ACID
     Route: 048
  2. ACETYLSALICYLIC ACID [Concomitant]
     Active Substance: ASPIRIN
     Route: 048
  3. SEROQUEL [Suspect]
     Active Substance: QUETIAPINE FUMARATE
     Route: 048
     Dates: start: 20121209, end: 20121213
  4. SEROQUEL [Suspect]
     Active Substance: QUETIAPINE FUMARATE
     Route: 048
     Dates: start: 2005
  5. SEROQUEL [Suspect]
     Active Substance: QUETIAPINE FUMARATE
     Route: 048
     Dates: start: 20121207, end: 20121207
  6. SEROQUEL [Suspect]
     Active Substance: QUETIAPINE FUMARATE
     Route: 048
     Dates: start: 20121208, end: 20121208
  7. TAVOR [Suspect]
     Active Substance: LORAZEPAM
     Route: 048
     Dates: start: 20141207, end: 20141207
  8. TAVOR [Suspect]
     Active Substance: LORAZEPAM
     Route: 048
     Dates: start: 20141208, end: 20141212

REACTIONS (5)
  - Somnolence [Recovered/Resolved]
  - Disorientation [Recovered/Resolved]
  - Overdose [Unknown]
  - Sedation [Recovered/Resolved]
  - Disturbance in attention [Recovered/Resolved]

NARRATIVE: CASE EVENT DATE: 20121213
